FAERS Safety Report 8023091-8 (Version None)
Quarter: 2012Q1

REPORT INFORMATION
  Report Type: 
  Country: None (occurrence: None)
  Receive Date: 20120104
  Receipt Date: 20111229
  Transmission Date: 20120608
  Serious: Yes (Other)
  Sender: FDA-Public Use
  Company Number: PHHY2011BR113581

PATIENT
  Sex: Female

DRUGS (11)
  1. ATACAND [Concomitant]
     Dosage: 1.5 DF, DAILY
  2. CLONAZEPAM [Concomitant]
     Dosage: 2 MG, UNK
  3. DAFLON (DIOSMIN/HESPERIDIN) [Concomitant]
     Dosage: 500 MG, BID
  4. PRANDIN [Concomitant]
     Dosage: 1 MG, BID
  5. FOLIC ACID W/VITAMIN B12 [Concomitant]
  6. IMOSEC [Concomitant]
  7. MESALAMINE [Concomitant]
     Dosage: 800 MG, BID
  8. DICLOFENAC SODIUM [Suspect]
     Indication: PAIN
     Dosage: 50 MG, BID
  9. ALPRAZOLAM [Concomitant]
  10. DUSPATALIN [Concomitant]
     Dosage: 200 MG, BID
  11. NIMESULIDE BETA-CYCLODEXTRINE [Concomitant]

REACTIONS (2)
  - ANKYLOSING SPONDYLITIS [None]
  - EXPIRED DRUG ADMINISTERED [None]
